FAERS Safety Report 24072938 (Version 1)
Quarter: 2024Q3

REPORT INFORMATION
  Report Type: Spontaneous
  Country: US (occurrence: US)
  Receive Date: 20240710
  Receipt Date: 20240710
  Transmission Date: 20241016
  Serious: No
  Sender: ROCHE
  Company Number: US-ROCHE-10000021390

PATIENT
  Age: 89 Year
  Sex: Female
  Weight: 62.59 kg

DRUGS (1)
  1. VABYSMO [Suspect]
     Active Substance: FARICIMAB\FARICIMAB-SVOA
     Indication: Product used for unknown indication
     Route: 031
     Dates: start: 202403

REACTIONS (2)
  - Off label use [Unknown]
  - No adverse event [Unknown]
